FAERS Safety Report 9128305 (Version 1)
Quarter: 2013Q1

REPORT INFORMATION
  Report Type: Spontaneous
  Country: FR (occurrence: FR)
  Receive Date: 20130228
  Receipt Date: 20130228
  Transmission Date: 20140127
  Serious: Yes (Hospitalization)
  Sender: FDA-Public Use
  Company Number: FR-SANOFI-AVENTIS-2013SA018128

PATIENT
  Age: 38 Year
  Sex: Female

DRUGS (1)
  1. CLOMID [Suspect]
     Indication: PRODUCT USED FOR UNKNOWN INDICATION
     Route: 065
     Dates: start: 201202

REACTIONS (2)
  - Pulmonary embolism [Recovered/Resolved]
  - Aortic thrombosis [Recovered/Resolved]
